FAERS Safety Report 7928503-3 (Version None)
Quarter: 2011Q4

REPORT INFORMATION
  Report Type: 
  Country: None (occurrence: None)
  Receive Date: 20111118
  Receipt Date: 20111108
  Transmission Date: 20120403
  Serious: Yes (Death, Other)
  Sender: FDA-Public Use
  Company Number: CA-ELI_LILLY_AND_COMPANY-CA201111002311

PATIENT
  Sex: Male

DRUGS (3)
  1. ZYPREXA [Suspect]
     Dosage: 5 MG, UNK
     Dates: start: 20050129
  2. GLYBURIDE [Concomitant]
     Dosage: UNK
  3. METFORMIN HCL [Concomitant]

REACTIONS (2)
  - PANCREATITIS [None]
  - DEATH [None]
